FAERS Safety Report 25842296 (Version 1)
Quarter: 2025Q3

REPORT INFORMATION
  Report Type: Spontaneous
  Country: VN (occurrence: VN)
  Receive Date: 20250924
  Receipt Date: 20250924
  Transmission Date: 20251020
  Serious: Yes (Other)
  Sender: SANDOZ
  Company Number: VN-SANDOZ-SDZ2024VN080736

PATIENT
  Age: 68 Year
  Sex: Female
  Weight: 45 kg

DRUGS (3)
  1. ACLASTA [Suspect]
     Active Substance: ZOLEDRONIC ACID
     Indication: Osteoarthritis
     Route: 042
     Dates: start: 20190920
  2. ACLASTA [Suspect]
     Active Substance: ZOLEDRONIC ACID
     Indication: Osteoporosis
     Route: 042
     Dates: start: 20201015
  3. ACLASTA [Suspect]
     Active Substance: ZOLEDRONIC ACID
     Route: 042
     Dates: start: 20211111

REACTIONS (6)
  - Osteoporosis [Unknown]
  - Disease progression [Unknown]
  - Muscle spasms [Recovering/Resolving]
  - Arthralgia [Recovered/Resolved]
  - Pain in extremity [Recovering/Resolving]
  - Pyrexia [Recovered/Resolved]

NARRATIVE: CASE EVENT DATE: 20210101
